FAERS Safety Report 17798188 (Version 1)
Quarter: 2020Q2

REPORT INFORMATION
  Report Type: Spontaneous
  Country: KR (occurrence: KR)
  Receive Date: 20200518
  Receipt Date: 20200518
  Transmission Date: 20200714
  Serious: Yes (Death, Other)
  Sender: FDA-Public Use
  Company Number: KR-EUSA PHARMA-2014-KR-004712

PATIENT

DRUGS (1)
  1. ASPARAGINASE [Suspect]
     Active Substance: ASPARAGINASE
     Indication: ACUTE LYMPHOCYTIC LEUKAEMIA
     Dosage: INDUCTION THERAPY

REACTIONS (3)
  - Pneumonia [Fatal]
  - Acute respiratory distress syndrome [Fatal]
  - Haemorrhage intracranial [Recovered/Resolved]
